FAERS Safety Report 25505670 (Version 1)
Quarter: 2025Q3

REPORT INFORMATION
  Report Type: Spontaneous
  Country: US (occurrence: US)
  Receive Date: 20250702
  Receipt Date: 20250702
  Transmission Date: 20251020
  Serious: No
  Sender: VERONA PHARMA
  Company Number: US-VERONA PHARMA-VER-005329

PATIENT
  Age: 72 Year
  Sex: Male

DRUGS (3)
  1. OHTUVAYRE [Suspect]
     Active Substance: ENSIFENTRINE
     Indication: Chronic obstructive pulmonary disease
     Dosage: 3 MILLIGRAM, BID
     Dates: start: 20250424
  2. DUONEB [Concomitant]
     Active Substance: ALBUTEROL SULFATE\IPRATROPIUM BROMIDE
     Indication: Product used for unknown indication
  3. BUDESONIDE [Concomitant]
     Active Substance: BUDESONIDE
     Indication: Product used for unknown indication

REACTIONS (6)
  - Decreased appetite [Unknown]
  - Malaise [Unknown]
  - Insomnia [Unknown]
  - Product colour issue [Unknown]
  - Liquid product physical issue [Unknown]
  - Product residue present [Unknown]
